FAERS Safety Report 11950637 (Version 3)
Quarter: 2016Q1

REPORT INFORMATION
  Report Type: Spontaneous
  Country: US (occurrence: US)
  Receive Date: 20160126
  Receipt Date: 20160216
  Transmission Date: 20160526
  Serious: No
  Sender: FDA-Public Use
  Company Number: US-PFIZER INC-2016003823

PATIENT
  Age: 56 Year
  Sex: Female

DRUGS (4)
  1. NEURONTIN [Suspect]
     Active Substance: GABAPENTIN
     Indication: ANXIETY
     Dosage: 800 MG, UNK
  2. NEURONTIN [Interacting]
     Active Substance: GABAPENTIN
     Indication: SOCIAL ANXIETY DISORDER
  3. CLONAZEPAM. [Interacting]
     Active Substance: CLONAZEPAM
     Indication: ANXIETY
     Dosage: UNK
     Dates: start: 2010
  4. CLONAZEPAM. [Interacting]
     Active Substance: CLONAZEPAM
     Indication: SOCIAL ANXIETY DISORDER

REACTIONS (2)
  - Drug ineffective for unapproved indication [Unknown]
  - Drug interaction [Unknown]

NARRATIVE: CASE EVENT DATE: 2010
